FAERS Safety Report 9269544 (Version 1)
Quarter: 2013Q2

REPORT INFORMATION
  Report Type: Spontaneous
  Country: US (occurrence: US)
  Receive Date: 20130503
  Receipt Date: 20130503
  Transmission Date: 20140414
  Serious: Yes (Other)
  Sender: FDA-Public Use
  Company Number: US-PFIZER INC-2013134878

PATIENT
  Age: 50 Year
  Sex: Female
  Weight: 65.76 kg

DRUGS (4)
  1. ESTRING [Suspect]
     Indication: OESTROGEN REPLACEMENT THERAPY
     Dosage: 2 MG, ONCE EVERY THREE MONTHS
     Route: 067
     Dates: start: 20130328
  2. ZONISAMIDE [Concomitant]
     Indication: MIGRAINE
     Dosage: UNK
  3. ESTRADIOL [Concomitant]
     Dosage: UNK
  4. PROGESTERONE [Concomitant]
     Dosage: UNK

REACTIONS (1)
  - Fungal infection [Not Recovered/Not Resolved]
